FAERS Safety Report 7134070-7 (Version None)
Quarter: 2010Q4

REPORT INFORMATION
  Report Type: 
  Country: None (occurrence: None)
  Receive Date: 20101203
  Receipt Date: 20101124
  Transmission Date: 20110411
  Serious: Yes (Hospitalization)
  Sender: FDA-Public Use
  Company Number: JP-BRISTOL-MYERS SQUIBB COMPANY-15350051

PATIENT
  Age: 64 Year
  Sex: Male
  Weight: 70 kg

DRUGS (15)
  1. ABILIFY [Suspect]
     Indication: SCHIZOPHRENIA
     Dosage: 08JUN-30AUG10(84DAYS),27MG 31AUG-4OCT10(35D),24MG 5OCT-11OCT10(7D),30MG 12-13OCT10(2D).
     Route: 048
     Dates: start: 20100608, end: 20101013
  2. RISPERDAL [Suspect]
     Indication: SCHIZOPHRENIA
     Dosage: TABLET:6MG:QD:ORAL:13OCT10 9MG/D
     Route: 048
     Dates: start: 20101013
  3. MYSLEE [Suspect]
     Indication: INSOMNIA
     Dosage: 12OCT10:5MG/D,13OCT:UNK:10MG/D,23OCT10:UNK:5MG/D TABS
     Route: 048
     Dates: start: 20101012
  4. BIPERIDEN HYDROCHLORIDE TAB [Suspect]
     Indication: PROPHYLAXIS
     Dosage: TABLET:ONG
     Route: 048
     Dates: start: 20101013
  5. VEGETAMIN-B [Suspect]
     Indication: INSOMNIA
     Dosage: TABLET:ONG
     Route: 048
     Dates: start: 20101013
  6. LENDORMIN [Suspect]
     Indication: INSOMNIA
     Dosage: TABS
     Route: 048
     Dates: start: 20101013
  7. DEPAS [Concomitant]
     Dates: start: 20100831, end: 20101011
  8. POLARAMINE [Concomitant]
     Dates: start: 20101005, end: 20101011
  9. SELBEX [Concomitant]
     Dates: start: 20080826, end: 20101011
  10. ATARAX [Concomitant]
     Dates: start: 20101007, end: 20101011
  11. HIRNAMIN [Concomitant]
     Dates: start: 20101012, end: 20101012
  12. AKINETON [Concomitant]
     Dates: start: 20101013
  13. MYSTAN [Concomitant]
     Dates: start: 20101017
  14. LODOPIN [Concomitant]
     Dates: start: 20101017
  15. PROMETHAZINE [Concomitant]
     Dates: end: 20101005

REACTIONS (2)
  - INSOMNIA [None]
  - SCHIZOPHRENIA [None]
